FAERS Safety Report 7905878-2 (Version None)
Quarter: 2011Q4

REPORT INFORMATION
  Report Type: 
  Country: None (occurrence: None)
  Receive Date: 20111110
  Receipt Date: 20111107
  Transmission Date: 20120403
  Serious: Yes (Hospitalization, Other)
  Sender: FDA-Public Use
  Company Number: US-PFIZER INC-2011272932

PATIENT
  Sex: Male

DRUGS (1)
  1. CHANTIX [Suspect]
     Dosage: UNK
     Dates: start: 20060901

REACTIONS (7)
  - AGGRESSION [None]
  - MANIA [None]
  - ANXIETY [None]
  - DEPRESSION [None]
  - DELUSION [None]
  - ABNORMAL BEHAVIOUR [None]
  - PARANOIA [None]
